FAERS Safety Report 23907619 (Version 2)
Quarter: 2024Q2

REPORT INFORMATION
  Report Type: Spontaneous
  Country: US (occurrence: US)
  Receive Date: 20240528
  Receipt Date: 20240608
  Transmission Date: 20240716
  Serious: Yes (Life-Threatening, Hospitalization, Other)
  Sender: FDA-Public Use
  Company Number: US-TEVA-VS-3201854

PATIENT
  Age: 30 Year
  Sex: Female

DRUGS (1)
  1. LAMOTRIGINE [Suspect]
     Active Substance: LAMOTRIGINE
     Indication: Anxiety
     Route: 065

REACTIONS (3)
  - Drug-induced liver injury [Unknown]
  - Hepatic fibrosis [Unknown]
  - Spontaneous bacterial peritonitis [Unknown]

NARRATIVE: CASE EVENT DATE: 20220101
